FAERS Safety Report 10070376 (Version 1)
Quarter: 2014Q2

REPORT INFORMATION
  Report Type: Spontaneous
  Country: GB (occurrence: None)
  Receive Date: 20140408
  Receipt Date: 20140408
  Transmission Date: 20141212
  Serious: Yes (Hospitalization, Disabling)
  Sender: FDA-Public Use
  Company Number: AUR-APL-2014-04104

PATIENT
  Age: 11 Year
  Sex: Female
  Weight: 44 kg

DRUGS (7)
  1. AMOXICILLIN + CLAVULANIC ACID [Suspect]
     Indication: OTITIS MEDIA ACUTE
     Route: 048
     Dates: start: 20100614, end: 20100624
  2. CO-AMOXICLAV (AUGMENTIN) (AMOXICILLIN [Suspect]
     Indication: OTITIS MEDIA ACUTE
     Route: 042
  3. BACTROBAN (MUPIROCIN) [Concomitant]
  4. CODEINE [Concomitant]
  5. DICLOFENAC [Concomitant]
  6. IBUPROFEN [Concomitant]
  7. PARACETAMOL [Concomitant]

REACTIONS (8)
  - Rash generalised [None]
  - Pyrexia [None]
  - Arthralgia [None]
  - Urticaria [None]
  - Peripheral swelling [None]
  - Peripheral swelling [None]
  - Gait disturbance [None]
  - Treatment failure [None]
